FAERS Safety Report 8933408 (Version 2)
Quarter: 2012Q4

REPORT INFORMATION
  Report Type: 
  Country: JO (occurrence: JO)
  Receive Date: 20121128
  Receipt Date: 20121206
  Transmission Date: 20130627
  Serious: Yes (Other)
  Sender: FDA-Public Use
  Company Number: JO-PFIZER INC-2012297258

PATIENT
  Age: 39 Year
  Sex: Male

DRUGS (2)
  1. CADUET [Suspect]
     Indication: HYPERTENSION
     Dosage: 10 mg/20 mg, 1x/day
     Route: 048
     Dates: start: 2010, end: 201209
  2. CADUET [Suspect]
     Indication: DYSLIPIDEMIA
     Dosage: 10 mg/10 mg
     Dates: start: 2009, end: 2010

REACTIONS (1)
  - Microalbuminuria [Unknown]
